FAERS Safety Report 20871217 (Version 1)
Quarter: 2022Q2

REPORT INFORMATION
  Report Type: Spontaneous
  Country: US (occurrence: None)
  Receive Date: 20220524
  Receipt Date: 20220524
  Transmission Date: 20220721
  Serious: Yes (Other)
  Sender: FDA-Public Use
  Company Number: None

PATIENT
  Sex: Female

DRUGS (3)
  1. XELJANZ [Suspect]
     Active Substance: TOFACITINIB CITRATE
     Indication: Rheumatoid arthritis
     Dosage: TAKE 1 TABLET BY MOUTH TWICE DAILY?
     Route: 048
     Dates: start: 20150722
  2. HYDROXYCHLOR TAB [Concomitant]
  3. PREDNISONE PAK [Concomitant]

REACTIONS (2)
  - Surgery [None]
  - Intentional dose omission [None]
